FAERS Safety Report 15322134 (Version 2)
Quarter: 2018Q3

REPORT INFORMATION
  Report Type: Report from Study
  Country: ES (occurrence: ES)
  Receive Date: 20180827
  Receipt Date: 20180829
  Transmission Date: 20181010
  Serious: Yes (Death, Hospitalization)
  Sender: FDA-Public Use
  Company Number: ES-ROCHE-2174455

PATIENT
  Age: 51 Year
  Sex: Male
  Weight: 92 kg

DRUGS (2)
  1. COBIMETINIB. [Suspect]
     Active Substance: COBIMETINIB
     Indication: MALIGNANT MELANOMA
     Dosage: MOST RECENT DOSE (60 MG) PRIOR TO SAE ON 21/AUG/2018.?ON DAYS 1?21 OF EACH 28?DAY CYCLE
     Route: 048
     Dates: start: 20180808
  2. ATEZOLIZUMAB. [Suspect]
     Active Substance: ATEZOLIZUMAB
     Indication: MALIGNANT MELANOMA
     Dosage: THIS WAS THE MOS RECENT DOSE PRIOR TO SAE.?ON DAYS 1 AND 15 OF EACH 28?DAY CYCLE,
     Route: 042
     Dates: start: 20180808

REACTIONS (1)
  - Oesophagitis [Fatal]

NARRATIVE: CASE EVENT DATE: 20180822
